FAERS Safety Report 5210549-X (Version None)
Quarter: 2007Q1

REPORT INFORMATION
  Report Type: 
  Country: None (occurrence: None)
  Receive Date: 20070117
  Receipt Date: 20070111
  Transmission Date: 20070707
  Serious: Yes (Other)
  Sender: FDA-Public Use
  Company Number: PHBS2006BR19347

PATIENT
  Age: 36 Year
  Sex: Female

DRUGS (1)
  1. DICLOFENAC SODIUM [Suspect]
     Indication: BACK PAIN
     Dosage: 50 MG, QD
     Route: 048

REACTIONS (3)
  - DEAFNESS UNILATERAL [None]
  - DIZZINESS [None]
  - TINNITUS [None]
